FAERS Safety Report 23244672 (Version 2)
Quarter: 2023Q4

REPORT INFORMATION
  Report Type: Spontaneous
  Country: US (occurrence: US)
  Receive Date: 20231130
  Receipt Date: 20231218
  Transmission Date: 20240110
  Serious: No
  Sender: FDA-Public Use
  Company Number: US-JNJFOC-20231147701

PATIENT
  Age: 72 Year
  Sex: Male

DRUGS (1)
  1. MENS ROGAINE EXTRA STRENGTH [Suspect]
     Active Substance: MINOXIDIL
     Indication: Alopecia
     Dosage: AS PER DIRECTIONS AS PER DIRECTIONS
     Route: 061
     Dates: start: 20231115

REACTIONS (2)
  - Headache [Unknown]
  - Product odour abnormal [Unknown]
